FAERS Safety Report 21498068 (Version 1)
Quarter: 2022Q4

REPORT INFORMATION
  Report Type: Spontaneous
  Country: CN (occurrence: CN)
  Receive Date: 20221024
  Receipt Date: 20221024
  Transmission Date: 20230113
  Serious: Yes (Hospitalization, Other)
  Sender: FDA-Public Use
  Company Number: None

PATIENT
  Age: 72 Year
  Sex: Female
  Weight: 43 kg

DRUGS (4)
  1. MESNA [Suspect]
     Active Substance: MESNA
     Indication: Soft tissue sarcoma
     Dosage: 0.4 G, QD
     Route: 042
     Dates: start: 20220326, end: 20220328
  2. IFOSFAMIDE [Suspect]
     Active Substance: IFOSFAMIDE
     Indication: Soft tissue sarcoma
     Dosage: 2.5 G, QD, D1-D3
     Route: 041
     Dates: start: 20220326, end: 20220328
  3. EPIRUBICIN HYDROCHLORIDE [Suspect]
     Active Substance: EPIRUBICIN HYDROCHLORIDE
     Indication: Soft tissue sarcoma
     Dosage: 60 MG, QD, D1
     Route: 042
     Dates: start: 20220326, end: 20220326
  4. EPIRUBICIN HYDROCHLORIDE [Suspect]
     Active Substance: EPIRUBICIN HYDROCHLORIDE
     Dosage: 50 MG, QD, D2
     Route: 042
     Dates: start: 20220327, end: 20220327

REACTIONS (1)
  - Myelosuppression [Recovering/Resolving]

NARRATIVE: CASE EVENT DATE: 20220404
